FAERS Safety Report 5046395-X (Version None)
Quarter: 2006Q3

REPORT INFORMATION
  Report Type: 
  Country: None (occurrence: None)
  Receive Date: 20060710
  Receipt Date: 20060418
  Transmission Date: 20061208
  Serious: Yes (Hospitalization)
  Sender: FDA-Public Use
  Company Number: JP-ROCHE-444658

PATIENT
  Age: 71 Year
  Sex: Male
  Weight: 76.5 kg

DRUGS (7)
  1. PANALDINE [Suspect]
     Route: 048
     Dates: start: 20011012, end: 20011017
  2. PANALDINE [Suspect]
     Route: 048
     Dates: start: 20011018, end: 20011112
  3. RENIVACE [Concomitant]
     Indication: HYPERTENSION
     Route: 048
     Dates: start: 20011012
  4. SUNRYTHM [Concomitant]
     Route: 048
     Dates: start: 20011012
  5. HARNAL [Concomitant]
     Route: 048
     Dates: start: 20011012
  6. GASTER [Concomitant]
     Indication: GASTRITIS
     Route: 048
     Dates: start: 20011012
  7. GLIMICRON [Concomitant]
     Indication: DIABETES MELLITUS
     Route: 048
     Dates: start: 20011013

REACTIONS (7)
  - BLOOD PRESSURE INCREASED [None]
  - BLUE TOE SYNDROME [None]
  - CARDIOMEGALY [None]
  - HEART RATE INCREASED [None]
  - HEPATIC ENZYME INCREASED [None]
  - POST PROCEDURAL COMPLICATION [None]
  - PURPURA [None]
